FAERS Safety Report 20229654 (Version 1)
Quarter: 2021Q4

REPORT INFORMATION
  Report Type: Spontaneous
  Country: VE (occurrence: VE)
  Receive Date: 20211226
  Receipt Date: 20211226
  Transmission Date: 20220303
  Serious: Yes (Other)
  Sender: FDA-Public Use
  Company Number: VE-NOVARTISPH-NVSC2021VE138601

PATIENT
  Sex: Female

DRUGS (1)
  1. GLIVEC [Suspect]
     Active Substance: IMATINIB MESYLATE
     Indication: Chronic myeloid leukaemia
     Dosage: 400 MG (4X 100 MG TABLETS)
     Route: 065

REACTIONS (5)
  - Presyncope [Unknown]
  - Hydrocephalus [Unknown]
  - Brain neoplasm [Unknown]
  - Asthenia [Unknown]
  - Vomiting [Unknown]
